FAERS Safety Report 25978894 (Version 1)
Quarter: 2025Q4

REPORT INFORMATION
  Report Type: Spontaneous
  Country: US (occurrence: US)
  Receive Date: 20251030
  Receipt Date: 20251030
  Transmission Date: 20260118
  Serious: No
  Sender: UPSHER SMITH LABORATORIES
  Company Number: US-UPSHER-SMITH LABORATORIES, LLC-20250901258

PATIENT
  Sex: Male

DRUGS (2)
  1. JANTOVEN [Suspect]
     Active Substance: WARFARIN SODIUM
     Indication: Anticoagulant therapy
     Dosage: UNK
     Route: 065
  2. ACTHAR [Suspect]
     Active Substance: CORTICOTROPIN
     Indication: Product used for unknown indication
     Dosage: UNK
     Route: 065

REACTIONS (1)
  - Injection site discolouration [Recovered/Resolved]
